FAERS Safety Report 10861671 (Version 1)
Quarter: 2015Q1

REPORT INFORMATION
  Report Type: Spontaneous
  Country: US (occurrence: US)
  Receive Date: 20150224
  Receipt Date: 20150224
  Transmission Date: 20150721
  Serious: Yes (Other)
  Sender: FDA-Public Use
  Company Number: US-TEVA-542370USA

PATIENT
  Age: 36 Year
  Sex: Female

DRUGS (1)
  1. PARAGARD T 380A [Suspect]
     Active Substance: COPPER
     Indication: CONTRACEPTION
     Route: 015
     Dates: start: 201402

REACTIONS (7)
  - Pyrexia [Unknown]
  - Pelvic pain [Not Recovered/Not Resolved]
  - Pelvic abscess [Not Recovered/Not Resolved]
  - Uterine perforation [Not Recovered/Not Resolved]
  - White blood cell count increased [Unknown]
  - Pelvic fluid collection [Not Recovered/Not Resolved]
  - Fallopian tube enlargement [Not Recovered/Not Resolved]

NARRATIVE: CASE EVENT DATE: 20150208
